FAERS Safety Report 14076881 (Version 1)
Quarter: 2017Q4

REPORT INFORMATION
  Report Type: Other
  Country: GB (occurrence: GB)
  Receive Date: 20171011
  Receipt Date: 20171011
  Transmission Date: 20180321
  Serious: Yes (Other)
  Sender: FDA-Public Use
  Company Number: GB-INTERNATIONAL MEDICATION SYSTEMS, LIMITED-2029704

PATIENT
  Age: 61 Year
  Sex: Female

DRUGS (3)
  1. BUPIVACAINE 0.5% [Suspect]
     Active Substance: BUPIVACAINE
     Route: 062
  2. LIDOCAINE 2% [Suspect]
     Active Substance: LIDOCAINE
     Indication: LOCAL ANAESTHESIA
     Route: 062
  3. HYALURONIDASE 150 IU [Suspect]
     Active Substance: HYALURONIDASE
     Route: 062

REACTIONS (3)
  - Trigeminal palsy [Recovered/Resolved]
  - Agitation [None]
  - Facial paralysis [Recovered/Resolved]
